FAERS Safety Report 21760459 (Version 2)
Quarter: 2022Q4

REPORT INFORMATION
  Report Type: Report from Study
  Country: CA (occurrence: None)
  Receive Date: 20221221
  Receipt Date: 20221226
  Transmission Date: 20230112
  Serious: Yes (Hospitalization)
  Sender: FDA-Public Use
  Company Number: CA-Merck Healthcare KGaA-9373243

PATIENT
  Sex: Male

DRUGS (2)
  1. SAIZEN [Suspect]
     Active Substance: SOMATROPIN
     Indication: Growth failure
     Dates: start: 20160917
  2. SAIZEN [Suspect]
     Active Substance: SOMATROPIN
     Indication: Chronic kidney disease

REACTIONS (1)
  - End stage renal disease [Unknown]
